FAERS Safety Report 9690829 (Version 1)
Quarter: 2013Q4

REPORT INFORMATION
  Report Type: Spontaneous
  Country: US (occurrence: None)
  Receive Date: 20131114
  Receipt Date: 20131114
  Transmission Date: 20140711
  Serious: Yes (Other)
  Sender: FDA-Public Use
  Company Number: None

PATIENT
  Age: 20 Year
  Sex: Male
  Weight: 83.92 kg

DRUGS (1)
  1. OMNIPAQUIE [Suspect]

REACTIONS (4)
  - Sneezing [None]
  - Pruritus [None]
  - Urticaria [None]
  - Unevaluable event [None]
